FAERS Safety Report 7061420-2 (Version None)
Quarter: 2010Q4

REPORT INFORMATION
  Report Type: 
  Country: None (occurrence: None)
  Receive Date: 20101026
  Receipt Date: 20101014
  Transmission Date: 20110411
  Serious: Yes (Life-Threatening, Hospitalization)
  Sender: FDA-Public Use
  Company Number: DE-MEDIMMUNE-MEDI-0011649

PATIENT
  Sex: Male

DRUGS (1)
  1. SYNAGIS [Suspect]
     Dosage: 100/50 MG
     Dates: start: 20100101, end: 20100101

REACTIONS (2)
  - MULTI-ORGAN FAILURE [None]
  - RESPIRATORY SYNCYTIAL VIRUS INFECTION [None]
